FAERS Safety Report 19610820 (Version 1)
Quarter: 2021Q3

REPORT INFORMATION
  Report Type: Spontaneous
  Country: ES (occurrence: ES)
  Receive Date: 20210726
  Receipt Date: 20210726
  Transmission Date: 20211014
  Serious: Yes (Life-Threatening)
  Sender: FDA-Public Use
  Company Number: ES-MYLANLABS-2021M1044824

PATIENT
  Age: 56 Year
  Sex: Male
  Weight: 106 kg

DRUGS (11)
  1. ATORVASTATINA                      /01326101/ [Concomitant]
     Active Substance: ATORVASTATIN
     Dosage: UNK
  2. QUETIAPINA                         /01270901/ [Concomitant]
     Active Substance: QUETIAPINE
     Dosage: UNK
  3. METFORMIN [Suspect]
     Active Substance: METFORMIN HYDROCHLORIDE
     Indication: TYPE 2 DIABETES MELLITUS
     Dosage: 850 MILLIGRAM, Q8H (CADA 8 HORAS)
     Route: 048
     Dates: start: 20190101, end: 20210126
  4. PROPRANOLOL [Concomitant]
     Active Substance: PROPRANOLOL HYDROCHLORIDE
     Dosage: UNK
  5. PANTOPRAZOL                        /01263201/ [Concomitant]
     Active Substance: PANTOPRAZOLE
     Dosage: UNK
  6. SEROQUEL [Concomitant]
     Active Substance: QUETIAPINE FUMARATE
     Dosage: UNK
  7. ACFOL [Concomitant]
     Active Substance: FOLIC ACID
     Dosage: UNK
  8. LAMOTRIGINA [Concomitant]
     Active Substance: LAMOTRIGINE
     Dosage: UNK
  9. DORMODOR [Concomitant]
     Active Substance: FLURAZEPAM HYDROCHLORIDE
     Dosage: UNK
  10. DELTIUS [Concomitant]
     Active Substance: CHOLECALCIFEROL
     Dosage: UNK
  11. ENALAPRIL [Concomitant]
     Active Substance: ENALAPRIL
     Dosage: UNK

REACTIONS (2)
  - Lactic acidosis [Recovering/Resolving]
  - Drug interaction [Unknown]

NARRATIVE: CASE EVENT DATE: 20210126
